FAERS Safety Report 8157514 (Version 3)
Quarter: 2013Q1

REPORT INFORMATION
  Report Type: Spontaneous
  Country: US (occurrence: US)
  Receive Date: 20110927
  Receipt Date: 20130215
  Transmission Date: 20140127
  Serious: Yes (Other)
  Sender: FDA-Public Use
  Company Number: US-ASTRAZENECA-2011SE12629

PATIENT
  Sex: Female

DRUGS (20)
  1. SEROQUEL [Suspect]
     Route: 048
     Dates: start: 20010604
  2. FERROUS SULFATE [Concomitant]
     Dates: start: 20010410
  3. NORTRIPTYLINE HCL [Concomitant]
     Dates: start: 20010411
  4. SERZONE [Concomitant]
     Dates: start: 20010411
  5. CELEXA [Concomitant]
     Dates: start: 20010418
  6. ACIPHEX [Concomitant]
     Dates: start: 20010430
  7. NORVASC [Concomitant]
     Dates: start: 20010430
  8. NORVASC [Concomitant]
     Dates: start: 20030617
  9. UNI-DAILY [Concomitant]
     Dates: start: 20010530
  10. MEDROXYPROGESTERONE [Concomitant]
     Dosage: 10 M
     Dates: start: 20010430
  11. MEDROXYPROGESTERONE [Concomitant]
     Dates: start: 20030716
  12. VIOXX [Concomitant]
     Dates: start: 20010615
  13. RISPERDAL [Concomitant]
     Dates: start: 20010615
  14. NEXIUM [Concomitant]
     Dates: start: 20030522
  15. WELLBUTRIN SR [Concomitant]
     Dates: start: 20030522
  16. NAPROXEN [Concomitant]
     Dates: start: 20020917
  17. BACLOFEN [Concomitant]
     Dosage: TAKE 3 TABS AT BEDTIME
     Dates: start: 20020917
  18. FUROSEMIDE [Concomitant]
     Dates: start: 20020917
  19. ALLEGRA [Concomitant]
     Dates: start: 20020826
  20. ULTRACET [Concomitant]
     Dosage: TAKE 2 TABLETS EVERY 6 HOURS
     Dates: start: 20020823

REACTIONS (3)
  - Pancreatitis [Unknown]
  - Diabetic coma [Unknown]
  - Type 2 diabetes mellitus [Unknown]
